FAERS Safety Report 24405458 (Version 1)
Quarter: 2024Q4

REPORT INFORMATION
  Report Type: Spontaneous
  Country: US (occurrence: None)
  Receive Date: 20241004
  Receipt Date: 20241004
  Transmission Date: 20250115
  Serious: No
  Sender: Public
  Company Number: None

PATIENT
  Age: 25 Year
  Sex: Female
  Weight: 55.8 kg

DRUGS (5)
  1. RISPERIDONE [Suspect]
     Active Substance: RISPERIDONE
     Indication: Psychotic disorder
     Dosage: OTHER QUANTITY : 15 TABLET(S);?FREQUENCY : AT BEDTIME;?
     Route: 048
     Dates: start: 20240926, end: 20241003
  2. RISPERIDONE [Suspect]
     Active Substance: RISPERIDONE
     Indication: Schizophrenia
  3. RISPERIDONE [Suspect]
     Active Substance: RISPERIDONE
     Indication: Bipolar disorder
  4. CANNABIS SATIVA SUBSP. INDICA TOP [Concomitant]
     Active Substance: CANNABIS SATIVA SUBSP. INDICA TOP
  5. peppermint and green tea [Concomitant]

REACTIONS (12)
  - Vomiting [None]
  - Feeling abnormal [None]
  - Dyspnoea [None]
  - Chest discomfort [None]
  - Movement disorder [None]
  - Hypoaesthesia [None]
  - Musculoskeletal stiffness [None]
  - Musculoskeletal stiffness [None]
  - Headache [None]
  - Pain [None]
  - Product complaint [None]
  - Brief resolved unexplained event [None]

NARRATIVE: CASE EVENT DATE: 20241003
